FAERS Safety Report 10966634 (Version 1)
Quarter: 2015Q1

REPORT INFORMATION
  Report Type: Spontaneous
  Country: US (occurrence: None)
  Receive Date: 20150226
  Receipt Date: 20150226
  Transmission Date: 20150721
  Serious: No
  Sender: FDA-Public Use
  Company Number: TPA2010A05123

PATIENT
  Age: 57 Year
  Sex: Male
  Weight: 131.54 kg

DRUGS (5)
  1. ULORIC [Suspect]
     Active Substance: FEBUXOSTAT
     Indication: GOUT
     Route: 048
     Dates: start: 20100901, end: 20100921
  2. ENALAPRIL (ENALAPRIL) [Concomitant]
     Active Substance: ENALAPRIL
  3. METOPROLOL (METOPROLOL) [Concomitant]
     Active Substance: METOPROLOL
  4. PROBENECID (PROBENECID) [Suspect]
     Active Substance: PROBENECID
     Indication: GOUT
     Route: 048
     Dates: start: 20100901, end: 20100921
  5. COLCHICINE (COLCHICINE) [Suspect]
     Active Substance: COLCHICINE
     Indication: GOUT
     Route: 048
     Dates: start: 20100907

REACTIONS (9)
  - Gout [None]
  - Aspartate aminotransferase increased [None]
  - Condition aggravated [None]
  - Diarrhoea [None]
  - Oedema peripheral [None]
  - Alanine aminotransferase increased [None]
  - Weight decreased [None]
  - Nausea [None]
  - Vomiting [None]

NARRATIVE: CASE EVENT DATE: 201009
